FAERS Safety Report 7619562-6 (Version None)
Quarter: 2011Q3

REPORT INFORMATION
  Report Type: 
  Country: None (occurrence: None)
  Receive Date: 20110719
  Receipt Date: 20110705
  Transmission Date: 20111222
  Serious: Yes (Death)
  Sender: FDA-Public Use
  Company Number: AU-MYLANLABS-2011S1014375

PATIENT
  Age: 22 Year
  Sex: Female

DRUGS (7)
  1. METHADONE HCL [Suspect]
     Route: 065
  2. METOCLOPRAMIDE [Suspect]
     Route: 065
  3. MORPHINE [Suspect]
     Route: 065
  4. METHAMPHETAMINE HYDROCHLORIDE [Suspect]
     Route: 065
  5. METHYLENEDIOXYMETHAMPHETAMINE [Suspect]
  6. ACETAMINOPHEN [Suspect]
     Route: 065
  7. FUROSEMIDE [Suspect]
     Route: 065

REACTIONS (2)
  - DRUG INTERACTION [None]
  - TOXICITY TO VARIOUS AGENTS [None]
